FAERS Safety Report 9178433 (Version 4)
Quarter: 2014Q2

REPORT INFORMATION
  Report Type: Spontaneous
  Country: GB (occurrence: GB)
  Receive Date: 20130321
  Receipt Date: 20140409
  Transmission Date: 20141212
  Serious: Yes (Other)
  Sender: FDA-Public Use
  Company Number: GB-ASTRAZENECA-2013SE17729

PATIENT
  Age: 3 Year
  Sex: Male

DRUGS (3)
  1. LOSEC [Suspect]
     Indication: GASTROOESOPHAGEAL REFLUX DISEASE
     Route: 048
     Dates: start: 201110, end: 201303
  2. RANITIDINE [Concomitant]
     Route: 065
  3. SUCRALFATE [Concomitant]
     Route: 065

REACTIONS (5)
  - Gastric polyps [Unknown]
  - Gastrointestinal haemorrhage [Unknown]
  - Psychomotor hyperactivity [Unknown]
  - Sleep disorder [Unknown]
  - Insomnia [Unknown]
